FAERS Safety Report 4323680-8 (Version None)
Quarter: 2004Q1

REPORT INFORMATION
  Report Type: 
  Country: None (occurrence: None)
  Receive Date: 20040323
  Receipt Date: 20040309
  Transmission Date: 20041129
  Serious: Yes (Hospitalization)
  Sender: FDA-Public Use
  Company Number: AU-JNJFOC-20040303961

PATIENT
  Age: 63 Year
  Sex: Female

DRUGS (5)
  1. TRAMADOL HCL [Suspect]
     Indication: DRUG USE FOR UNKNOWN INDICATION
     Dosage: 400 MG, IN  1 DAY, ORAL
     Route: 048
     Dates: start: 20020502, end: 20030508
  2. TOFRANIL [Suspect]
     Indication: ANXIETY DISORDER
     Dosage: 100 MG, IN 1 DAY, ORAL
     Route: 048
     Dates: start: 20020418
  3. OROXINE (LEVOTHYROXINE SODIUM) [Concomitant]
  4. ORUDIS [Concomitant]
  5. SEREPAX (OXAZEPAM) [Concomitant]

REACTIONS (3)
  - CONFUSIONAL STATE [None]
  - DELUSION [None]
  - MEMORY IMPAIRMENT [None]
